FAERS Safety Report 12206769 (Version 1)
Quarter: 2016Q1

REPORT INFORMATION
  Report Type: Spontaneous
  Country: US (occurrence: US)
  Receive Date: 20160324
  Receipt Date: 20160324
  Transmission Date: 20160526
  Serious: No
  Sender: FDA-Public Use
  Company Number: US-ELI_LILLY_AND_COMPANY-US201603001642

PATIENT
  Sex: Female

DRUGS (2)
  1. ACTOS [Concomitant]
     Active Substance: PIOGLITAZONE HYDROCHLORIDE
     Dosage: UNK
  2. TRULICITY [Suspect]
     Active Substance: DULAGLUTIDE
     Indication: TYPE 2 DIABETES MELLITUS
     Dosage: 0.75 MG WEEKLY (1/W)
     Route: 058
     Dates: start: 20160227

REACTIONS (2)
  - Oral candidiasis [Unknown]
  - Dyspepsia [Unknown]

NARRATIVE: CASE EVENT DATE: 201602
